FAERS Safety Report 7367778-9 (Version None)
Quarter: 2011Q1

REPORT INFORMATION
  Report Type: 
  Country: None (occurrence: None)
  Receive Date: 20110322
  Receipt Date: 20110311
  Transmission Date: 20110831
  Serious: Yes (Other)
  Sender: FDA-Public Use
  Company Number: US-PFIZER INC-2007036584

PATIENT
  Sex: Female

DRUGS (1)
  1. NEURONTIN [Suspect]
     Indication: NEUROPATHY PERIPHERAL
     Dosage: UNK

REACTIONS (10)
  - STAPHYLOCOCCAL INFECTION [None]
  - MYOCARDIAL INFARCTION [None]
  - DRUG INEFFECTIVE [None]
  - CEREBROVASCULAR ACCIDENT [None]
  - THINKING ABNORMAL [None]
  - CARDIAC PACEMAKER REMOVAL [None]
  - AMNESIA [None]
  - CARDIAC OPERATION [None]
  - SUICIDAL IDEATION [None]
  - DEPRESSION [None]
